FAERS Safety Report 4365359-2 (Version None)
Quarter: 2004Q2

REPORT INFORMATION
  Report Type: 
  Country: None (occurrence: None)
  Receive Date: 20040525
  Receipt Date: 20040504
  Transmission Date: 20050107
  Serious: Yes (Hospitalization, Other)
  Sender: FDA-Public Use
  Company Number: USA040566576

PATIENT
  Age: 85 Year
  Sex: Female
  Weight: 68 kg

DRUGS (1)
  1. HUMULIN N [Suspect]
     Indication: DIABETES MELLITUS
     Dosage: 14 U/DAY
     Dates: start: 19910101

REACTIONS (10)
  - CARDIAC FAILURE CONGESTIVE [None]
  - CATARACT [None]
  - CORONARY ARTERIAL STENT INSERTION [None]
  - INFECTION [None]
  - MEDICAL DEVICE COMPLICATION [None]
  - MEDICATION ERROR [None]
  - MENINGITIS [None]
  - OEDEMA PERIPHERAL [None]
  - PHARMACEUTICAL PRODUCT COMPLAINT [None]
  - TOOTH INJURY [None]
